FAERS Safety Report 6335104-X (Version None)
Quarter: 2009Q3

REPORT INFORMATION
  Report Type: 
  Country: None (occurrence: None)
  Receive Date: 20090828
  Receipt Date: 20090828
  Transmission Date: 20100115
  Serious: Yes (Life-Threatening, Hospitalization)
  Sender: FDA-Public Use
  Company Number: None

PATIENT
  Sex: Female
  Weight: 68.7 kg

DRUGS (4)
  1. HUMIRA [Suspect]
     Indication: TRANSIENT ISCHAEMIC ATTACK
     Dosage: 40 MG Q2WKS SQ
     Route: 058
     Dates: end: 20090129
  2. HUMIRA [Suspect]
     Indication: UVEITIS
     Dosage: 40 MG Q2WKS SQ
     Route: 058
     Dates: end: 20090129
  3. HYDROCHLOROQUINE [Concomitant]
  4. METHOTREXATE [Concomitant]

REACTIONS (4)
  - ACUTE PULMONARY HISTOPLASMOSIS [None]
  - INFECTIOUS MONONUCLEOSIS [None]
  - PNEUMONIA [None]
  - RESPIRATORY FAILURE [None]
